FAERS Safety Report 20848834 (Version 1)
Quarter: 2022Q2

REPORT INFORMATION
  Report Type: Spontaneous
  Country: US (occurrence: US)
  Receive Date: 20220519
  Receipt Date: 20220519
  Transmission Date: 20220720
  Serious: No
  Sender: FDA-Public Use
  Company Number: US-BRISTOL-MYERS SQUIBB COMPANY-2022-035512

PATIENT
  Age: 59 Year
  Sex: Female

DRUGS (2)
  1. ELIQUIS [Suspect]
     Active Substance: APIXABAN
     Indication: Deep vein thrombosis
     Route: 048
     Dates: start: 202104, end: 20210717
  2. ELIQUIS [Suspect]
     Active Substance: APIXABAN
     Dosage: DOSE : UNAVAILABLE;     FREQ : TWICE A DAY
     Route: 048
     Dates: start: 202201

REACTIONS (1)
  - Inappropriate schedule of product administration [Unknown]
